FAERS Safety Report 13673031 (Version 3)
Quarter: 2017Q3

REPORT INFORMATION
  Report Type: Spontaneous
  Country: US (occurrence: US)
  Receive Date: 20170621
  Receipt Date: 20170814
  Transmission Date: 20171127
  Serious: Yes (Hospitalization)
  Sender: FDA-Public Use
  Company Number: US-BAYER-2017-116414

PATIENT
  Age: 76 Year
  Sex: Male
  Weight: 86.17 kg

DRUGS (4)
  1. GADAVIST [Suspect]
     Active Substance: GADOBUTROL
     Indication: NODULE
  2. GADAVIST [Suspect]
     Active Substance: GADOBUTROL
     Indication: WOUND
     Dosage: 8 ML, ONCE (2 ML/SEC)
     Route: 042
     Dates: start: 20170607, end: 20170607
  3. GADAVIST [Suspect]
     Active Substance: GADOBUTROL
     Indication: NEOPLASM
  4. GADAVIST [Suspect]
     Active Substance: GADOBUTROL
     Indication: NUCLEAR MAGNETIC RESONANCE IMAGING

REACTIONS (13)
  - Pulse abnormal [None]
  - Fall [None]
  - Loss of consciousness [Unknown]
  - Dizziness [None]
  - Off label use [None]
  - Heart rate decreased [Unknown]
  - Presyncope [None]
  - Flushing [None]
  - Product use in unapproved indication [None]
  - Hyperhidrosis [None]
  - Blood pressure decreased [Not Recovered/Not Resolved]
  - Rash [None]
  - Dysphonia [Not Recovered/Not Resolved]

NARRATIVE: CASE EVENT DATE: 20170607
